FAERS Safety Report 23996993 (Version 1)
Quarter: 2024Q2

REPORT INFORMATION
  Report Type: Spontaneous
  Country: CH (occurrence: CH)
  Receive Date: 20240621
  Receipt Date: 20240621
  Transmission Date: 20240716
  Serious: Yes (Other)
  Sender: FDA-Public Use
  Company Number: CH-CHEPLA-2024007756

PATIENT
  Age: 33 Year
  Sex: Male

DRUGS (6)
  1. VALGANCICLOVIR [Suspect]
     Active Substance: VALGANCICLOVIR
  2. VALGANCICLOVIR [Suspect]
     Active Substance: VALGANCICLOVIR
  3. MYCOPHENOLATE MOFETIL [Suspect]
     Active Substance: MYCOPHENOLATE MOFETIL
     Dosage: DAILY DOSE: 2 GRAM
  4. PREDNISOLONE [Suspect]
     Active Substance: PREDNISOLONE
  5. BASILIXIMAB [Suspect]
     Active Substance: BASILIXIMAB
  6. CYCLOSPORINE [Suspect]
     Active Substance: CYCLOSPORINE

REACTIONS (3)
  - Hydronephrosis [Recovered/Resolved]
  - Blood creatinine increased [Recovered/Resolved]
  - Haematuria [Recovered/Resolved]
